FAERS Safety Report 11996279 (Version 1)
Quarter: 2016Q1

REPORT INFORMATION
  Report Type: Spontaneous
  Country: US (occurrence: US)
  Receive Date: 20160203
  Receipt Date: 20160203
  Transmission Date: 20160526
  Serious: Yes (Other)
  Sender: FDA-Public Use
  Company Number: US-BAYER-2016-019589

PATIENT
  Age: 72 Year
  Sex: Female
  Weight: 102.4 kg

DRUGS (1)
  1. AFRIN ORIGINAL [Suspect]
     Active Substance: OXYMETAZOLINE HYDROCHLORIDE
     Indication: NASAL CONGESTION
     Dosage: 1 DF, PRN
     Route: 045

REACTIONS (3)
  - Product quality issue [None]
  - Drug dependence [Not Recovered/Not Resolved]
  - Product use issue [None]
